FAERS Safety Report 17362335 (Version 2)
Quarter: 2020Q1

REPORT INFORMATION
  Report Type: Spontaneous
  Country: DE (occurrence: DE)
  Receive Date: 20200203
  Receipt Date: 20200218
  Transmission Date: 20200409
  Serious: Yes (Other)
  Sender: FDA-Public Use
  Company Number: DE-SAMSUNG BIOEPIS-SB-2020-02766

PATIENT
  Age: 22 Year
  Sex: Female
  Weight: 57 kg

DRUGS (1)
  1. INFLIXIMAB [Suspect]
     Active Substance: INFLIXIMAB
     Indication: PRODUCT USED FOR UNKNOWN INDICATION
     Route: 042
     Dates: start: 20190724

REACTIONS (10)
  - Hyperhidrosis [Recovering/Resolving]
  - Seizure [Recovering/Resolving]
  - Menstrual disorder [Recovering/Resolving]
  - Vulvovaginal dryness [Recovering/Resolving]
  - Vulvovaginal pruritus [Recovering/Resolving]
  - Hypomenorrhoea [Recovering/Resolving]
  - Dyspnoea [Unknown]
  - Alopecia [Recovering/Resolving]
  - Flushing [Recovering/Resolving]
  - Arthralgia [Unknown]

NARRATIVE: CASE EVENT DATE: 20190724
